FAERS Safety Report 8277304-8 (Version None)
Quarter: 2012Q2

REPORT INFORMATION
  Report Type: 
  Country: None (occurrence: None)
  Receive Date: 20120412
  Receipt Date: 20120405
  Transmission Date: 20120825
  Serious: Yes (Hospitalization)
  Sender: FDA-Public Use
  Company Number: JP-GLAXOSMITHKLINE-B0769992A

PATIENT
  Sex: Male

DRUGS (14)
  1. UNKNOWN [Concomitant]
     Dosage: 2IUAX PER DAY
     Route: 048
  2. FLUNITRAZEPAM [Concomitant]
     Dosage: 3IUAX PER DAY
     Route: 048
  3. MIGLITOL [Concomitant]
     Dosage: 1IUAX PER DAY
     Route: 048
  4. UNKNOWN [Concomitant]
     Dosage: 3IUAX PER DAY
     Route: 048
  5. VOLTAREN [Concomitant]
     Dosage: 1IUAX PER DAY
     Route: 048
  6. ROZEREM [Concomitant]
     Dosage: 2IUAX PER DAY
     Route: 048
  7. LAMICTAL [Suspect]
     Indication: BIPOLAR DISORDER
     Dosage: 50MG PER DAY
     Route: 048
     Dates: start: 20111107
  8. ABILIFY [Concomitant]
     Dosage: 1IUAX PER DAY
     Route: 048
  9. PAXIL [Concomitant]
     Dosage: 2IUAX PER DAY
     Route: 048
  10. LAMICTAL [Suspect]
     Dosage: 100MG PER DAY
     Route: 048
     Dates: start: 20111209, end: 20111209
  11. CRESTOR [Concomitant]
     Dosage: 1IUAX PER DAY
     Route: 048
  12. ZOLPIDEM [Concomitant]
     Dosage: 2IUAX PER DAY
     Route: 048
  13. TRANSAMINE CAP [Concomitant]
     Dosage: 3IUAX PER DAY
     Route: 048
  14. UNKNOWN [Concomitant]
     Dosage: 1IUAX PER DAY
     Route: 048

REACTIONS (19)
  - BLOOD LACTATE DEHYDROGENASE INCREASED [None]
  - GAMMA-GLUTAMYLTRANSFERASE INCREASED [None]
  - EYE DISCHARGE [None]
  - LYMPHADENOPATHY [None]
  - STEVENS-JOHNSON SYNDROME [None]
  - ERYTHEMA [None]
  - PYREXIA [None]
  - ALANINE AMINOTRANSFERASE INCREASED [None]
  - C-REACTIVE PROTEIN INCREASED [None]
  - RASH MACULO-PAPULAR [None]
  - SKIN EROSION [None]
  - EPIDERMOLYSIS [None]
  - SCAB [None]
  - EPIDERMAL NECROSIS [None]
  - ASPARTATE AMINOTRANSFERASE INCREASED [None]
  - BLOOD ALKALINE PHOSPHATASE INCREASED [None]
  - ERYTHEMA OF EYELID [None]
  - WHITE BLOOD CELL COUNT INCREASED [None]
  - HYPERKERATOSIS [None]
